FAERS Safety Report 4309102-1 (Version None)
Quarter: 2004Q1

REPORT INFORMATION
  Report Type: 
  Country: None (occurrence: None)
  Receive Date: 20040301
  Receipt Date: 20040225
  Transmission Date: 20041129
  Serious: Yes (Other)
  Sender: FDA-Public Use
  Company Number: THQ2004A00235

PATIENT
  Sex: Female

DRUGS (3)
  1. LANSOPRAZOLE [Suspect]
     Indication: HYPERCHLORHYDRIA
     Dosage: SEE IMAGE
     Route: 048
  2. THYROXINE (LEVOTHYROXINE) [Suspect]
     Dosage: (1 IN 1 D)
  3. PLAQUENIL [Suspect]
     Dosage: 400 MG (200 MG, 2 IN 1 D)

REACTIONS (3)
  - DRUG INTERACTION [None]
  - DYSPEPSIA [None]
  - FIBROMYALGIA [None]
